FAERS Safety Report 11520042 (Version 1)
Quarter: 2015Q3

REPORT INFORMATION
  Report Type: Spontaneous
  Country: US (occurrence: None)
  Receive Date: 20150917
  Receipt Date: 20150917
  Transmission Date: 20151125
  Serious: Yes (Other)
  Sender: FDA-Public Use
  Company Number: None

PATIENT
  Age: 42 Year
  Sex: Male

DRUGS (1)
  1. STELARA [Suspect]
     Active Substance: USTEKINUMAB
     Indication: PSORIASIS
     Dosage: ONCE EVERY 12 WEEKS
     Route: 058
     Dates: start: 20150407, end: 201509

REACTIONS (1)
  - No therapeutic response [None]

NARRATIVE: CASE EVENT DATE: 201509
